FAERS Safety Report 10163867 (Version 1)
Quarter: 2014Q2

REPORT INFORMATION
  Report Type: Report from Study
  Country: US (occurrence: US)
  Receive Date: 20140509
  Receipt Date: 20140509
  Transmission Date: 20141212
  Serious: Yes (Hospitalization, Other)
  Sender: FDA-Public Use
  Company Number: US-ABBVIE-14P-163-1232792-00

PATIENT
  Age: 27 Year
  Sex: Female
  Weight: 53.57 kg

DRUGS (6)
  1. HUMIRA [Suspect]
     Indication: CROHN^S DISEASE
     Route: 058
     Dates: start: 20140428
  2. HUMIRA [Suspect]
     Dates: start: 201307, end: 201403
  3. ZOLOFT [Concomitant]
     Indication: DEPRESSION
  4. PEPCID AC [Concomitant]
     Indication: GASTROOESOPHAGEAL REFLUX DISEASE
  5. VITAMIN D [Concomitant]
     Indication: VITAMIN SUPPLEMENTATION
  6. PRO AIR [Concomitant]
     Indication: ASTHMA

REACTIONS (7)
  - Abdominal adhesions [Recovering/Resolving]
  - Musculoskeletal stiffness [Recovered/Resolved]
  - Muscle atrophy [Not Recovered/Not Resolved]
  - Musculoskeletal disorder [Recovering/Resolving]
  - Alopecia [Recovered/Resolved]
  - Amnesia [Not Recovered/Not Resolved]
  - Injection site bruising [Recovered/Resolved]
